FAERS Safety Report 5275724-7 (Version None)
Quarter: 2007Q1

REPORT INFORMATION
  Report Type: 
  Country: None (occurrence: None)
  Receive Date: 20061213
  Receipt Date: 20040319
  Transmission Date: 20070707
  Serious: No
  Sender: FDA-Public Use
  Company Number: 2004UW05297

PATIENT
  Age: 80 Year
  Sex: Female

DRUGS (12)
  1. SEROQUEL [Suspect]
     Dosage: 150 MG DAILY PO
     Route: 048
     Dates: end: 20030101
  2. PAXIL [Concomitant]
  3. LIPITOR [Concomitant]
  4. BACLOFEN [Concomitant]
  5. BUMEX [Concomitant]
  6. SYNTHROID [Concomitant]
  7. VICODIN [Concomitant]
  8. KLONOPIN [Concomitant]
  9. MAGNESIUM [Concomitant]
  10. POTASSIUM ACETATE [Concomitant]
  11. COLACE [Concomitant]
  12. VITAMIN CAP [Concomitant]

REACTIONS (1)
  - PLATELET COUNT DECREASED [None]
